FAERS Safety Report 17985672 (Version 2)
Quarter: 2020Q3

REPORT INFORMATION
  Report Type: Spontaneous
  Country: JP (occurrence: JP)
  Receive Date: 20200706
  Receipt Date: 20200828
  Transmission Date: 20201103
  Serious: No
  Sender: FDA-Public Use
  Company Number: JP-JNJFOC-20200637437

PATIENT
  Age: 82 Year
  Sex: Male
  Weight: 78.7 kg

DRUGS (1)
  1. ERLEADA [Suspect]
     Active Substance: APALUTAMIDE
     Indication: HORMONE-REFRACTORY PROSTATE CANCER
     Route: 048
     Dates: start: 20200312, end: 20200423

REACTIONS (1)
  - Bundle branch block right [Recovering/Resolving]

NARRATIVE: CASE EVENT DATE: 20200423
